FAERS Safety Report 6624013-4 (Version None)
Quarter: 2010Q1

REPORT INFORMATION
  Report Type: 
  Country: None (occurrence: None)
  Receive Date: 20100310
  Receipt Date: 20100225
  Transmission Date: 20100710
  Serious: Yes (Other)
  Sender: FDA-Public Use
  Company Number: PHHY2009DE53278

PATIENT
  Age: 31 Year
  Sex: Female

DRUGS (1)
  1. ESTRAGEST TTS [Suspect]
     Dosage: 5 MG
     Route: 062
     Dates: start: 20091001, end: 20091202

REACTIONS (3)
  - ABDOMINAL DISTENSION [None]
  - ABDOMINAL PAIN [None]
  - RENAL COLIC [None]
